FAERS Safety Report 6684804-0 (Version None)
Quarter: 2010Q2

REPORT INFORMATION
  Report Type: 
  Country: None (occurrence: None)
  Receive Date: 20100416
  Receipt Date: 20100408
  Transmission Date: 20101027
  Serious: Yes (Hospitalization)
  Sender: FDA-Public Use
  Company Number: JP-JNJCH-2010008840

PATIENT
  Sex: Female

DRUGS (1)
  1. ZYRTEC [Suspect]
     Indication: PRURITUS
     Dosage: TEXT:10MG QD
     Route: 048
     Dates: start: 20100317, end: 20100401

REACTIONS (2)
  - DYSPNOEA [None]
  - MUSCULOSKELETAL STIFFNESS [None]
